FAERS Safety Report 8615289 (Version 3)
Quarter: 2014Q2

REPORT INFORMATION
  Report Type: Spontaneous
  Country: US (occurrence: US)
  Receive Date: 20120614
  Receipt Date: 20140401
  Transmission Date: 20141212
  Serious: Yes (Other)
  Sender: FDA-Public Use
  Company Number: US-AMGEN-USASP2012014023

PATIENT
  Age: 77 Year
  Sex: Female
  Weight: 63 kg

DRUGS (13)
  1. PROLIA [Suspect]
     Indication: OSTEOPOROSIS POSTMENOPAUSAL
     Dosage: 60 MG, Q6MO
     Route: 058
     Dates: start: 201209
  2. TRILEPTAL [Concomitant]
     Indication: TRIGEMINAL NEURALGIA
     Dosage: 6000 MG, QD
     Route: 048
  3. FLECAINIDE [Concomitant]
     Dosage: 3 MG, QD
  4. EVISTA [Concomitant]
     Dosage: 1 MG, QD
  5. SIMVASTATIN [Concomitant]
     Indication: HYPERCHOLESTEROLAEMIA
     Dosage: 40 MG, QD
     Route: 048
  6. CALCIUM WITH VITAMIN D3 [Concomitant]
     Dosage: 600 MG, UNK
  7. AMLODIPINE [Concomitant]
     Indication: HYPERTENSION
     Dosage: 5 MG, QD
     Route: 048
  8. WOMEN^S MULTI [Concomitant]
     Dosage: UNK UNK, QD
     Route: 048
  9. VITAMIN D3 [Concomitant]
     Dosage: 1000 IU, UNK
     Route: 048
  10. BABY ASPIRIN [Concomitant]
     Dosage: UNK UNK, 3 TIMES/WK
     Route: 065
  11. IBUPROFEN [Concomitant]
     Indication: HEADACHE
     Dosage: UNK UNK, AS NECESSARY
     Route: 065
  12. OXCARBAZEPINE [Concomitant]
     Indication: TRIGEMINAL NEURALGIA
     Dosage: 60 MG, TID
     Route: 065
  13. MEXILETINE HYDROCHLORIDE [Concomitant]
     Indication: HEART RATE IRREGULAR
     Dosage: 150 MG, TID
     Route: 065

REACTIONS (4)
  - Cataract [Unknown]
  - Extrasystoles [Unknown]
  - Heart rate increased [Unknown]
  - Chromaturia [Recovered/Resolved]
